FAERS Safety Report 4325407-2 (Version None)
Quarter: 2004Q1

REPORT INFORMATION
  Report Type: 
  Country: None (occurrence: None)
  Receive Date: 20040324
  Receipt Date: 20040309
  Transmission Date: 20041129
  Serious: Yes (Death)
  Sender: FDA-Public Use
  Company Number: US-SHR-04-021023

PATIENT

DRUGS (8)
  1. BETASERON [Suspect]
     Indication: MULTIPLE SCLEROSIS
     Dosage: SEE IMAGE SUBCUTANEOUS
     Route: 058
     Dates: start: 20020101, end: 20020101
  2. BETASERON [Suspect]
     Indication: MULTIPLE SCLEROSIS
     Dosage: SEE IMAGE SUBCUTANEOUS
     Route: 058
     Dates: start: 20020910, end: 20021001
  3. BETASERON [Suspect]
     Indication: MULTIPLE SCLEROSIS
     Dosage: SEE IMAGE SUBCUTANEOUS
     Route: 058
     Dates: start: 20021201, end: 20031230
  4. GABITRIL/SCH (TIAGABINE HYDROCHLORIDE) [Concomitant]
  5. ZANAFLEX [Concomitant]
  6. LEVAQUIN [Concomitant]
  7. ALBUTEROL [Concomitant]
  8. UNSPECIFIED BREATHING TREATMENTS [Concomitant]

REACTIONS (3)
  - GASTROINTESTINAL ULCER [None]
  - PNEUMONIA [None]
  - RESPIRATORY DISTRESS [None]
